FAERS Safety Report 15907976 (Version 2)
Quarter: 2019Q1

REPORT INFORMATION
  Report Type: Report from Study
  Country: IT (occurrence: IT)
  Receive Date: 20190204
  Receipt Date: 20190221
  Transmission Date: 20190417
  Serious: Yes (Other)
  Sender: FDA-Public Use
  Company Number: IT-PFIZER INC-2019049879

PATIENT
  Age: 49 Year
  Sex: Female

DRUGS (5)
  1. LONQUEX [Suspect]
     Active Substance: LIPEGFILGRASTIM
  2. FLUOROURACIL. [Suspect]
     Active Substance: FLUOROURACIL
  3. CYCLOPHOSPHAMIDE. [Suspect]
     Active Substance: CYCLOPHOSPHAMIDE
  4. DOCETAXEL. [Suspect]
     Active Substance: DOCETAXEL
  5. EPIRUBICIN HCL [Suspect]
     Active Substance: EPIRUBICIN HYDROCHLORIDE

REACTIONS (2)
  - Neutropenia [Recovering/Resolving]
  - Neurotoxicity [Unknown]
